FAERS Safety Report 9255157 (Version 2)
Quarter: 2013Q2

REPORT INFORMATION
  Report Type: Spontaneous
  Country: US (occurrence: US)
  Receive Date: 20130425
  Receipt Date: 20130425
  Transmission Date: 20140414
  Serious: Yes (Disabling)
  Sender: FDA-Public Use
  Company Number: US-MYLANLABS-2013S1006840

PATIENT
  Sex: Female

DRUGS (2)
  1. BUPROPION HYDROCHLORIDE EXTENDED-RELEASE TABLETS USP (XL) [Suspect]
     Indication: FATIGUE
     Route: 048
     Dates: start: 20121012, end: 2012
  2. BUPROPION HYDROCHLORIDE EXTENDED-RELEASE TABLETS USP (XL) [Suspect]
     Indication: DEPRESSION
     Route: 048
     Dates: start: 20121012, end: 2012

REACTIONS (1)
  - Arthritis [Recovered/Resolved]
